FAERS Safety Report 11624658 (Version 1)
Quarter: 2015Q4

REPORT INFORMATION
  Report Type: Spontaneous
  Country: US (occurrence: US)
  Receive Date: 20151013
  Receipt Date: 20151013
  Transmission Date: 20160304
  Serious: Yes (Hospitalization)
  Sender: FDA-Public Use
  Company Number: US-NOVOPROD-466316

PATIENT
  Age: 83 Year
  Sex: Female
  Weight: 45.35 kg

DRUGS (1)
  1. LEVEMIR [Suspect]
     Active Substance: INSULIN DETEMIR
     Indication: TYPE 2 DIABETES MELLITUS
     Dosage: UNK
     Route: 058
     Dates: start: 2013, end: 201507

REACTIONS (2)
  - Pneumonia [Recovered/Resolved]
  - Pleural effusion [Unknown]

NARRATIVE: CASE EVENT DATE: 201507
